FAERS Safety Report 17196430 (Version 1)
Quarter: 2019Q4

REPORT INFORMATION
  Report Type: Spontaneous
  Country: FR (occurrence: FR)
  Receive Date: 20191224
  Receipt Date: 20191224
  Transmission Date: 20200122
  Serious: Yes (Life-Threatening)
  Sender: FDA-Public Use
  Company Number: FR-ELI_LILLY_AND_COMPANY-13342704

PATIENT
  Age: 61 Year
  Sex: Female

DRUGS (2)
  1. ERBITUX [Suspect]
     Active Substance: CETUXIMAB
     Indication: ANAL CANCER
     Dosage: UNK UNK, QWK
     Route: 042
     Dates: start: 20060104
  2. CAMPTO [Suspect]
     Active Substance: IRINOTECAN
     Indication: ANAL CANCER
     Dosage: UNK UNK, QWK
     Route: 042

REACTIONS (1)
  - Aphthous ulcer [Unknown]

NARRATIVE: CASE EVENT DATE: 20060106
